FAERS Safety Report 25715898 (Version 1)
Quarter: 2025Q3

REPORT INFORMATION
  Report Type: Spontaneous
  Country: EU (occurrence: EU)
  Receive Date: 20250822
  Receipt Date: 20250822
  Transmission Date: 20251020
  Serious: Yes (Other)
  Sender: ROCHE
  Company Number: EU-ROCHE-2276274

PATIENT
  Age: 26 Year
  Sex: Female

DRUGS (20)
  1. RITUXIMAB [Suspect]
     Active Substance: RITUXIMAB
     Indication: Systemic lupus erythematosus
     Route: 065
  2. MYCOPHENOLATE MOFETIL [Suspect]
     Active Substance: MYCOPHENOLATE MOFETIL
     Indication: Systemic lupus erythematosus
     Route: 065
  3. MYCOPHENOLATE MOFETIL [Suspect]
     Active Substance: MYCOPHENOLATE MOFETIL
     Indication: Chronic kidney disease
  4. MYCOPHENOLATE MOFETIL [Suspect]
     Active Substance: MYCOPHENOLATE MOFETIL
     Indication: Bone metabolism disorder
  5. ROCALTROL [Suspect]
     Active Substance: CALCITRIOL
     Indication: Chronic kidney disease
     Route: 065
  6. ROCALTROL [Suspect]
     Active Substance: CALCITRIOL
     Indication: Bone metabolism disorder
  7. FOLIC ACID [Suspect]
     Active Substance: FOLIC ACID
     Indication: Bone metabolism disorder
     Route: 065
  8. FOLIC ACID [Suspect]
     Active Substance: FOLIC ACID
     Indication: Chronic kidney disease
  9. CINACALCET [Suspect]
     Active Substance: CINACALCET
     Indication: Chronic kidney disease
     Route: 065
  10. CINACALCET [Suspect]
     Active Substance: CINACALCET
     Indication: Bone metabolism disorder
     Route: 065
  11. OMEPRAZOLE [Suspect]
     Active Substance: OMEPRAZOLE
     Indication: Bone metabolism disorder
     Route: 065
  12. OMEPRAZOLE [Suspect]
     Active Substance: OMEPRAZOLE
     Indication: Chronic kidney disease
  13. SIMVASTATIN [Suspect]
     Active Substance: SIMVASTATIN
     Indication: Chronic kidney disease
     Route: 065
  14. SIMVASTATIN [Suspect]
     Active Substance: SIMVASTATIN
     Indication: Bone metabolism disorder
  15. CYCLOPHOSPHAMIDE [Concomitant]
     Active Substance: CYCLOPHOSPHAMIDE
  16. MYCOPHENOLIC ACID [Concomitant]
     Active Substance: MYCOPHENOLIC ACID
     Route: 065
  17. ENOXAPARIN [Concomitant]
     Active Substance: ENOXAPARIN
  18. DARBEPOETIN ALFA [Concomitant]
     Active Substance: DARBEPOETIN ALFA
  19. CHOLECALCIFEROL [Concomitant]
     Active Substance: CHOLECALCIFEROL
     Route: 065
  20. PREDNISOLONE [Concomitant]
     Active Substance: PREDNISOLONE

REACTIONS (5)
  - Off label use [Unknown]
  - Hyperparathyroidism [Unknown]
  - End stage renal disease [Unknown]
  - Treatment noncompliance [Unknown]
  - Therapeutic response decreased [Unknown]
